FAERS Safety Report 15853970 (Version 1)
Quarter: 2018Q4

REPORT INFORMATION
  Report Type: Spontaneous
  Country: US (occurrence: US)
  Receive Date: 20181227
  Receipt Date: 20181227
  Transmission Date: 20190205
  Serious: Yes (Hospitalization)
  Sender: FDA-Public Use
  Company Number: None

PATIENT
  Sex: Female
  Weight: 72.1 kg

DRUGS (3)
  1. 5-FLUOROURACIL (5-FU) [Suspect]
     Active Substance: FLUOROURACIL
     Dates: end: 20181214
  2. ELOXATIN [Suspect]
     Active Substance: OXALIPLATIN
     Dates: end: 20181212
  3. LEUCOVORIN CALCIUM. [Suspect]
     Active Substance: LEUCOVORIN CALCIUM
     Dates: end: 20181212

REACTIONS (14)
  - Vomiting [None]
  - Small intestinal obstruction [None]
  - Ileus [None]
  - Blood phosphorus decreased [None]
  - Diet refusal [None]
  - Enteritis infectious [None]
  - Diarrhoea [None]
  - Hypokalaemia [None]
  - Drug ineffective [None]
  - Blood potassium decreased [None]
  - Supraventricular tachycardia [None]
  - Blood magnesium decreased [None]
  - Paranoia [None]
  - Nausea [None]

NARRATIVE: CASE EVENT DATE: 20181217
